FAERS Safety Report 10879964 (Version 1)
Quarter: 2015Q1

REPORT INFORMATION
  Report Type: Spontaneous
  Country: IT (occurrence: IT)
  Receive Date: 20150302
  Receipt Date: 20150302
  Transmission Date: 20150721
  Serious: Yes (Death, Hospitalization)
  Sender: FDA-Public Use
  Company Number: IT-ABBVIE-15P-083-1353061-00

PATIENT
  Age: 70 Year
  Sex: Female
  Weight: 95 kg

DRUGS (3)
  1. RIBAVIRIN. [Suspect]
     Active Substance: RIBAVIRIN
     Indication: CHRONIC HEPATITIS C
     Route: 048
     Dates: start: 20150130, end: 20150217
  2. SOVALDI [Suspect]
     Active Substance: SOFOSBUVIR
     Indication: CHRONIC HEPATITIS C
     Route: 048
     Dates: start: 20150130, end: 20150217
  3. ALBUMIN [Suspect]
     Active Substance: ALBUMIN (HUMAN)
     Indication: HEPATIC CIRRHOSIS
     Route: 042
     Dates: start: 20140615, end: 20150217

REACTIONS (5)
  - Multi-organ failure [Fatal]
  - Disseminated intravascular coagulation [Fatal]
  - Cholecystitis infective [Fatal]
  - Septic shock [Fatal]
  - Urinary tract infection [Fatal]

NARRATIVE: CASE EVENT DATE: 20150217
